FAERS Safety Report 8817217 (Version 1)
Quarter: 2012Q4

REPORT INFORMATION
  Report Type: 
  Country: US (occurrence: US)
  Receive Date: 20121001
  Receipt Date: 20121001
  Transmission Date: 20130627
  Serious: Yes (Hospitalization)
  Sender: FDA-Public Use
  Company Number: US-ELI_LILLY_AND_COMPANY-US201209005551

PATIENT
  Age: 62 Year
  Sex: Female
  Weight: 113.38 kg

DRUGS (2)
  1. EFFIENT [Suspect]
     Dosage: 10 mg, qd
     Dates: start: 20120717
  2. LOSARTAN [Concomitant]
     Dosage: UNK

REACTIONS (1)
  - Renal failure acute [Recovering/Resolving]
